FAERS Safety Report 11625279 (Version 1)
Quarter: 2015Q4

REPORT INFORMATION
  Report Type: Spontaneous
  Country: US (occurrence: US)
  Receive Date: 20151013
  Receipt Date: 20151013
  Transmission Date: 20160304
  Serious: Yes (Life-Threatening)
  Sender: FDA-Public Use
  Company Number: US-JNJFOC-20151008025

PATIENT
  Age: 43 Year
  Sex: Female

DRUGS (2)
  1. LOPERAMIDE [Suspect]
     Active Substance: LOPERAMIDE
     Indication: DRUG WITHDRAWAL SYNDROME
     Dosage: 144 TABLETS OF 2 MG
     Route: 065
  2. LOPERAMIDE [Suspect]
     Active Substance: LOPERAMIDE
     Route: 065

REACTIONS (5)
  - Drug abuse [Unknown]
  - Ventricular extrasystoles [Unknown]
  - Torsade de pointes [Unknown]
  - Intentional overdose [Unknown]
  - Electrocardiogram QT prolonged [Unknown]
